FAERS Safety Report 7623013-5 (Version None)
Quarter: 2011Q3

REPORT INFORMATION
  Report Type: 
  Country: None (occurrence: None)
  Receive Date: 20110720
  Receipt Date: 20110714
  Transmission Date: 20111222
  Serious: Yes (Hospitalization, Other)
  Sender: FDA-Public Use
  Company Number: US-JNJFOC-20110401117

PATIENT
  Sex: Male
  Weight: 88.45 kg

DRUGS (3)
  1. PREDNISONE [Suspect]
     Indication: BRONCHITIS
     Route: 065
  2. LEVAQUIN [Suspect]
     Indication: BRONCHITIS
     Route: 048
     Dates: start: 20090201, end: 20090301
  3. LEVAQUIN [Suspect]
     Route: 048

REACTIONS (4)
  - ROTATOR CUFF SYNDROME [None]
  - TENOSYNOVITIS [None]
  - MENISCUS LESION [None]
  - TENDON RUPTURE [None]
